FAERS Safety Report 17942443 (Version 1)
Quarter: 2020Q2

REPORT INFORMATION
  Report Type: Spontaneous
  Country: GB (occurrence: GB)
  Receive Date: 20200624
  Receipt Date: 20200624
  Transmission Date: 20200714
  Serious: Yes (Hospitalization)
  Sender: FDA-Public Use
  Company Number: GB-ANIPHARMA-2020-UK-000133

PATIENT
  Age: 84 Year
  Sex: Female

DRUGS (2)
  1. TIOPEX [Suspect]
     Active Substance: TIMOLOL MALEATE
  2. CANDESARTAN CILEXETIL. [Suspect]
     Active Substance: CANDESARTAN CILEXETIL
     Indication: PRODUCT USED FOR UNKNOWN INDICATION
     Dosage: 8 MG UNKNOWN FREQUENCY
     Route: 048

REACTIONS (5)
  - Feeling abnormal [Unknown]
  - Contraindicated product administered [Unknown]
  - Head discomfort [Unknown]
  - Hospitalisation [Unknown]
  - Dizziness [Unknown]
